FAERS Safety Report 7769703-5 (Version None)
Quarter: 2011Q3

REPORT INFORMATION
  Report Type: 
  Country: None (occurrence: None)
  Receive Date: 20110922
  Receipt Date: 20110606
  Transmission Date: 20111222
  Serious: Yes (Life-Threatening, Other)
  Sender: FDA-Public Use
  Company Number: US-ASTRAZENECA-2011SE34595

PATIENT
  Sex: Male
  Weight: 71.7 kg

DRUGS (3)
  1. SEROQUEL [Suspect]
     Indication: DEPRESSION
     Route: 048
  2. BYSTOLIC [Suspect]
     Indication: HYPERTENSION
     Route: 065
  3. EFFEXOR XR [Suspect]
     Route: 065

REACTIONS (1)
  - SUICIDE ATTEMPT [None]
